FAERS Safety Report 9113077 (Version 1)
Quarter: 2013Q1

REPORT INFORMATION
  Report Type: Spontaneous
  Country: US (occurrence: US)
  Receive Date: 20130211
  Receipt Date: 20130211
  Transmission Date: 20140127
  Serious: No
  Sender: FDA-Public Use
  Company Number: US-ABBOTT-11P-163-0866687-00

PATIENT
  Age: 50 None
  Sex: Male

DRUGS (6)
  1. HUMIRA 40 MG/ 0.8 ML PRE-FILLED SYRINGE [Suspect]
     Indication: RHEUMATOID ARTHRITIS
     Dates: start: 20110126
  2. HUMIRA 40 MG/ 0.8 ML PRE-FILLED SYRINGE [Suspect]
     Dates: start: 20101130
  3. CELEBREX [Concomitant]
     Indication: RHEUMATOID ARTHRITIS
  4. PREDNISONE [Concomitant]
     Indication: RHEUMATOID ARTHRITIS
     Dosage: OCCASIONAL
  5. METHOTREXATE [Concomitant]
     Indication: RHEUMATOID ARTHRITIS
     Dates: start: 20110830
  6. ARAVA [Concomitant]
     Indication: RHEUMATOID ARTHRITIS

REACTIONS (6)
  - Pigmentation disorder [Not Recovered/Not Resolved]
  - Pigmentation disorder [Not Recovered/Not Resolved]
  - Tinea versicolour [Not Recovered/Not Resolved]
  - Dermatitis [Not Recovered/Not Resolved]
  - Vitiligo [Not Recovered/Not Resolved]
  - Skin hypopigmentation [Unknown]
